FAERS Safety Report 6014804-5 (Version None)
Quarter: 2008Q4

REPORT INFORMATION
  Report Type: 
  Country: None (occurrence: None)
  Receive Date: 20081219
  Receipt Date: 20081212
  Transmission Date: 20090506
  Serious: Yes (Other)
  Sender: FDA-Public Use
  Company Number: PHEH2008US04179

PATIENT
  Sex: Male

DRUGS (18)
  1. ZOMETA [Suspect]
     Indication: METASTASES TO BONE
     Dosage: 4 MG, Q3-4WEEKS
     Route: 042
     Dates: start: 20070330, end: 20080312
  2. AVASTIN [Concomitant]
     Indication: SMALL CELL LUNG CANCER METASTATIC
     Dosage: 15 MG/KG, QW3
     Dates: start: 20070201, end: 20070601
  3. AVASTIN [Concomitant]
     Dosage: 15 MG/KG, QW3
     Dates: start: 20071101, end: 20080301
  4. CARBOPLATIN [Concomitant]
     Indication: SMALL CELL LUNG CANCER METASTATIC
     Dosage: AUC 6, Q3WEEKS
     Dates: start: 20070201, end: 20070601
  5. CARBOPLATIN [Concomitant]
     Dosage: AUC 6, Q3WEEKS
     Dates: start: 20071101, end: 20080301
  6. PACLITAXEL [Concomitant]
     Indication: SMALL CELL LUNG CANCER METASTATIC
     Dosage: 200 MG/M2, Q3WEEKS
     Dates: start: 20070201, end: 20070601
  7. PACLITAXEL [Concomitant]
     Dosage: 200 MG/M2, Q3WEEKS
     Dates: start: 20071101, end: 20080301
  8. EMEND [Concomitant]
  9. DEXAMETHASONE [Concomitant]
     Indication: PROPHYLAXIS OF NAUSEA AND VOMITING
     Dosage: 4 MG, BID DAYS 2,3,4
     Route: 048
     Dates: start: 20070220, end: 20081101
  10. BENADRYL [Concomitant]
  11. ZOFRAN [Concomitant]
  12. COUMADIN [Concomitant]
  13. CALTRATE +D [Concomitant]
  14. COMPAZINE [Concomitant]
  15. PEPCID AC [Concomitant]
  16. M.V.I. [Concomitant]
  17. CISPLATIN [Concomitant]
     Indication: SMALL CELL LUNG CANCER METASTATIC
     Dosage: 30 MG/M2, QW
     Dates: start: 20071011, end: 20071025
  18. RADIATION THERAPY [Concomitant]
     Indication: SMALL CELL LUNG CANCER METASTATIC
     Dosage: UNK
     Dates: start: 20071101, end: 20071201

REACTIONS (3)
  - BONE DISORDER [None]
  - OSTEONECROSIS [None]
  - PAIN IN JAW [None]
